FAERS Safety Report 19195135 (Version 3)
Quarter: 2021Q2

REPORT INFORMATION
  Report Type: Spontaneous
  Country: US (occurrence: US)
  Receive Date: 20210429
  Receipt Date: 20210612
  Transmission Date: 20210717
  Serious: No
  Sender: FDA-Public Use
  Company Number: US-ORGANON-O2104USA001226

PATIENT
  Age: 19 Year
  Sex: Female
  Weight: 144 kg

DRUGS (1)
  1. NEXPLANON [Suspect]
     Active Substance: ETONOGESTREL
     Dosage: ONE EVERY THREE YEARS; LEFT ARM
     Route: 059
     Dates: start: 202003

REACTIONS (3)
  - Complication associated with device [Recovered/Resolved]
  - No adverse event [Unknown]
  - Complication of device removal [Recovered/Resolved]

NARRATIVE: CASE EVENT DATE: 202003
